FAERS Safety Report 9284218 (Version 2)
Quarter: 2013Q2

REPORT INFORMATION
  Report Type: Spontaneous
  Country: US (occurrence: US)
  Receive Date: 20130510
  Receipt Date: 20130520
  Transmission Date: 20140414
  Serious: Yes (Death, Other)
  Sender: FDA-Public Use
  Company Number: US-AMGEN-USASP2013032990

PATIENT
  Age: 68 Year
  Sex: Female

DRUGS (1)
  1. ENBREL [Suspect]
     Indication: DEMENTIA ALZHEIMER^S TYPE
     Dosage: UNK
     Dates: start: 2007, end: 201101

REACTIONS (8)
  - Death [Fatal]
  - Condition aggravated [Unknown]
  - Disorientation [Unknown]
  - Aggression [Unknown]
  - Aphasia [Unknown]
  - Dysphagia [Unknown]
  - Loss of control of legs [Unknown]
  - Drug ineffective for unapproved indication [Unknown]
